FAERS Safety Report 8399991 (Version 2)
Quarter: 2013Q4

REPORT INFORMATION
  Report Type: Spontaneous
  Country: US (occurrence: US)
  Receive Date: 20120210
  Receipt Date: 20131105
  Transmission Date: 20140711
  Serious: Yes (Other)
  Sender: FDA-Public Use
  Company Number: US-ROCHE-793933

PATIENT
  Age: 20 Year
  Sex: Female
  Weight: 61.29 kg

DRUGS (7)
  1. ACCUTANE [Suspect]
     Indication: ACNE
     Route: 065
  2. ACCUTANE [Suspect]
     Route: 065
     Dates: start: 20010104, end: 20010918
  3. ACCUTANE [Suspect]
     Route: 065
     Dates: start: 20030422, end: 20030521
  4. ACCUTANE [Suspect]
     Route: 065
  5. ACCUTANE [Suspect]
     Route: 065
  6. ACCUTANE [Suspect]
     Route: 065
  7. ACCUTANE [Suspect]
     Route: 065

REACTIONS (19)
  - Inflammatory bowel disease [Unknown]
  - Irritable bowel syndrome [Unknown]
  - Hernia [Unknown]
  - Depression [Unknown]
  - Colitis ulcerative [Unknown]
  - Intestinal obstruction [Recovered/Resolved]
  - Lip dry [Unknown]
  - Pneumonia [Unknown]
  - Dry skin [Unknown]
  - Rash [Unknown]
  - Excoriation [Unknown]
  - Oropharyngeal pain [Unknown]
  - Dry mouth [Unknown]
  - Dry eye [Unknown]
  - Herpes zoster [Unknown]
  - Headache [Unknown]
  - Malaise [Unknown]
  - Pyrexia [Unknown]
  - Pruritus [Unknown]
